FAERS Safety Report 13062106 (Version 3)
Quarter: 2018Q2

REPORT INFORMATION
  Report Type: Spontaneous
  Country: DE (occurrence: DE)
  Receive Date: 20161226
  Receipt Date: 20180509
  Transmission Date: 20180711
  Serious: Yes (Death, Hospitalization, Other)
  Sender: FDA-Public Use
  Company Number: DE-SA-2016SA229652

PATIENT
  Age: 79 Year
  Sex: Female
  Weight: 50 kg

DRUGS (5)
  1. CLOPIDOGREL BISULFATE. [Suspect]
     Active Substance: CLOPIDOGREL BISULFATE
     Indication: CEREBROVASCULAR ACCIDENT
     Route: 065
  2. CLOPIDOGREL BISULFATE. [Suspect]
     Active Substance: CLOPIDOGREL BISULFATE
     Indication: ANTIPLATELET THERAPY
     Route: 065
  3. PRADAXA [Suspect]
     Active Substance: DABIGATRAN ETEXILATE MESYLATE
     Indication: CEREBROVASCULAR ACCIDENT
     Route: 048
  4. PRAXBIND [Suspect]
     Active Substance: IDARUCIZUMAB
     Indication: PROCEDURAL HAEMORRHAGE
     Dosage: INFUSED
     Route: 065
  5. DABIGATRAN [Suspect]
     Active Substance: DABIGATRAN
     Indication: PROPHYLAXIS
     Route: 065

REACTIONS (16)
  - Coagulation factor increased [Fatal]
  - Procedural haemorrhage [Fatal]
  - Haemorrhage [Fatal]
  - Coagulation time prolonged [Fatal]
  - Activated partial thromboplastin time prolonged [Fatal]
  - Abdominal discomfort [Fatal]
  - Ileus paralytic [Fatal]
  - Anaemia [Fatal]
  - Prothrombin time prolonged [Fatal]
  - Abdominal pain [Fatal]
  - Coagulopathy [Fatal]
  - Peritonitis [Fatal]
  - Gastrointestinal haemorrhage [Fatal]
  - Rectal perforation [Fatal]
  - Vomiting [Fatal]
  - Creatinine renal clearance decreased [Fatal]
